FAERS Safety Report 18790319 (Version 3)
Quarter: 2022Q4

REPORT INFORMATION
  Report Type: Spontaneous
  Country: US (occurrence: None)
  Receive Date: 20210126
  Receipt Date: 20221123
  Transmission Date: 20230113
  Serious: Yes (Hospitalization, Other)
  Sender: FDA-Public Use
  Company Number: 2021A010839

PATIENT
  Age: 520 Month
  Sex: Male

DRUGS (41)
  1. FARXIGA [Suspect]
     Active Substance: DAPAGLIFLOZIN PROPANEDIOL
     Indication: Blood pressure decreased
     Route: 048
     Dates: start: 20170619
  2. FARXIGA [Suspect]
     Active Substance: DAPAGLIFLOZIN PROPANEDIOL
     Indication: Weight decreased
     Route: 048
     Dates: start: 20170619
  3. FARXIGA [Suspect]
     Active Substance: DAPAGLIFLOZIN PROPANEDIOL
     Indication: Type 2 diabetes mellitus
     Route: 048
     Dates: start: 20170619
  4. FARXIGA [Suspect]
     Active Substance: DAPAGLIFLOZIN PROPANEDIOL
     Indication: Diabetes mellitus
     Route: 048
     Dates: start: 20170619
  5. FARXIGA [Suspect]
     Active Substance: DAPAGLIFLOZIN PROPANEDIOL
     Indication: Blood pressure decreased
     Route: 048
     Dates: start: 20170619, end: 201812
  6. FARXIGA [Suspect]
     Active Substance: DAPAGLIFLOZIN PROPANEDIOL
     Indication: Weight decreased
     Route: 048
     Dates: start: 20170619, end: 201812
  7. FARXIGA [Suspect]
     Active Substance: DAPAGLIFLOZIN PROPANEDIOL
     Indication: Type 2 diabetes mellitus
     Route: 048
     Dates: start: 20170619, end: 201812
  8. FARXIGA [Suspect]
     Active Substance: DAPAGLIFLOZIN PROPANEDIOL
     Indication: Diabetes mellitus
     Route: 048
     Dates: start: 20170619, end: 201812
  9. ASPIRIN [Concomitant]
     Active Substance: ASPIRIN
     Indication: Blood pressure abnormal
  10. ATORVASTATIN [Concomitant]
     Active Substance: ATORVASTATIN
  11. HYDROCHLOROTHIAZIDE [Concomitant]
     Active Substance: HYDROCHLOROTHIAZIDE
     Indication: Blood pressure abnormal
  12. JANUVIA [Concomitant]
     Active Substance: SITAGLIPTIN PHOSPHATE
  13. KENALOG [Concomitant]
     Active Substance: TRIAMCINOLONE ACETONIDE
  14. LATANOPROST [Concomitant]
     Active Substance: LATANOPROST
  15. LISINOPRIL [Concomitant]
     Active Substance: LISINOPRIL
     Indication: Blood pressure abnormal
  16. METFORMIN [Concomitant]
     Active Substance: METFORMIN HYDROCHLORIDE
     Indication: Diabetes mellitus
     Dates: start: 2014
  17. METOPROLOL TARTRATE [Concomitant]
     Active Substance: METOPROLOL TARTRATE
     Indication: Blood pressure abnormal
  18. PIOGLITAZONE [Concomitant]
     Active Substance: PIOGLITAZONE
  19. CORICIDIN [Concomitant]
  20. ERGOCALCIFEROL [Concomitant]
     Active Substance: ERGOCALCIFEROL
  21. HUMALOG [Concomitant]
     Active Substance: INSULIN LISPRO
     Indication: Diabetes mellitus
  22. MONTELUKAST [Concomitant]
     Active Substance: MONTELUKAST SODIUM
  23. ROSUVASTATIN [Concomitant]
     Active Substance: ROSUVASTATIN
     Indication: Blood cholesterol abnormal
  24. FAMOTIDINE [Concomitant]
     Active Substance: FAMOTIDINE
  25. LIDOCAINE [Concomitant]
     Active Substance: LIDOCAINE
  26. MEROPENEM [Concomitant]
     Active Substance: MEROPENEM
  27. MORPHINE SULFATE [Concomitant]
     Active Substance: MORPHINE SULFATE
  28. POLYETHYLENE GLYCOL [Concomitant]
     Active Substance: POLYETHYLENE GLYCOL
  29. DOCUSATE SODIUM [Concomitant]
     Active Substance: DOCUSATE SODIUM
  30. FEXOFENADINE [Concomitant]
     Active Substance: FEXOFENADINE HYDROCHLORIDE
  31. ZITHROMAX [Concomitant]
     Active Substance: AZITHROMYCIN DIHYDRATE
  32. GEMFIBROZIL [Concomitant]
     Active Substance: GEMFIBROZIL
  33. COLCRYS [Concomitant]
     Active Substance: COLCHICINE
  34. TERBINAFINE [Concomitant]
     Active Substance: TERBINAFINE
  35. TRUEPLUS [Concomitant]
  36. SIMVASTATIN [Concomitant]
     Active Substance: SIMVASTATIN
  37. BENZONATATE [Concomitant]
     Active Substance: BENZONATATE
  38. FLUTICASONE [Concomitant]
     Active Substance: FLUTICASONE
  39. VITAMIN D2 [Concomitant]
     Active Substance: ERGOCALCIFEROL
  40. VALACYCLOVIR [Concomitant]
     Active Substance: VALACYCLOVIR HYDROCHLORIDE
  41. TOUJEO [Concomitant]
     Active Substance: INSULIN GLARGINE
     Indication: Diabetes mellitus

REACTIONS (10)
  - Fournier^s gangrene [Unknown]
  - Sepsis [Unknown]
  - Necrotising fasciitis [Unknown]
  - Injury [Unknown]
  - Scrotal abscess [Unknown]
  - Groin abscess [Unknown]
  - Perineal cellulitis [Unknown]
  - Acute kidney injury [Unknown]
  - Genital abscess [Unknown]
  - Abscess drainage [Unknown]

NARRATIVE: CASE EVENT DATE: 20181201
